FAERS Safety Report 22264509 (Version 1)
Quarter: 2023Q2

REPORT INFORMATION
  Report Type: Spontaneous
  Country: US (occurrence: None)
  Receive Date: 20230426
  Receipt Date: 20230426
  Transmission Date: 20230722
  Serious: Yes (Other)
  Sender: FDA-Public Use
  Company Number: None

PATIENT
  Sex: Female

DRUGS (2)
  1. ENOXAPARIN [Suspect]
     Active Substance: ENOXAPARIN
     Indication: Product used for unknown indication
     Dosage: 80 MG/O.8ML ??INJECT 1 SYRINGE UNDER THE SKIN (SUBCUTANEOUSLY INJECTION) EVERY DAY?
     Route: 058
     Dates: start: 20230401
  2. TACROLIMUS [Suspect]
     Active Substance: TACROLIMUS
     Indication: Product used for unknown indication
     Dosage: 1 MG ORAL?TAKE 3 CAPSULES BY MOUTH ONCE DAILY?
     Route: 048
     Dates: start: 20220608

REACTIONS (2)
  - Pancreatitis [None]
  - Therapy interrupted [None]
